FAERS Safety Report 7727571 (Version 4)
Quarter: 2013Q3

REPORT INFORMATION
  Report Type: Spontaneous
  Country: DE (occurrence: DE)
  Receive Date: 20101222
  Receipt Date: 20130712
  Transmission Date: 20140515
  Serious: Yes (Other)
  Sender: FDA-Public Use
  Company Number: DE-MPIJNJ-2010-06247

PATIENT
  Sex: 0

DRUGS (5)
  1. VELCADE [Suspect]
     Indication: PLASMA CELL MYELOMA
     Dosage: 1.3 MG/M2, UNK
     Route: 042
     Dates: start: 20100318, end: 20100329
  2. VELCADE [Suspect]
     Dosage: UNK
     Route: 042
     Dates: start: 20100930
  3. VELCADE [Suspect]
     Dosage: UNK
     Route: 042
     Dates: start: 20101105
  4. DEXAMETHASONE [Concomitant]
     Dosage: 8 MG, UNK
  5. GRANISETRON [Concomitant]
     Dosage: 1 MG, UNK

REACTIONS (4)
  - Memory impairment [Recovering/Resolving]
  - Visual impairment [Recovered/Resolved]
  - Neuropathy peripheral [Recovering/Resolving]
  - Dizziness [Recovering/Resolving]
